FAERS Safety Report 6048878-2 (Version None)
Quarter: 2009Q1

REPORT INFORMATION
  Report Type: 
  Country: None (occurrence: None)
  Receive Date: 20090121
  Receipt Date: 20080516
  Transmission Date: 20090719
  Serious: Yes (Other)
  Sender: FDA-Public Use
  Company Number: US-WYE-H04153108

PATIENT
  Age: 57 Year
  Sex: Female
  Weight: 61.29 kg

DRUGS (4)
  1. PREMPRO        (CONJUGATED ESTROGENS 0.45MG/MEDROXYPROGESTERONE ACETAT [Suspect]
     Indication: HORMONE REPLACEMENT THERAPY
     Dosage: 0.45MG/1.5MG FREQUENCY NOT SPECIFIED, ORAL ; ORAL
     Route: 048
     Dates: start: 20071001
  2. VITAMIN B12 [Concomitant]
  3. NARDIL [Concomitant]
  4. MULTI-VITAMINS [Concomitant]

REACTIONS (3)
  - ARTHRALGIA [None]
  - DEPRESSION [None]
  - WITHDRAWAL SYNDROME [None]
